FAERS Safety Report 21158772 (Version 1)
Quarter: 2022Q3

REPORT INFORMATION
  Report Type: Report from Study
  Country: US (occurrence: US)
  Receive Date: 20220802
  Receipt Date: 20220802
  Transmission Date: 20221027
  Serious: Yes (Other)
  Sender: FDA-Public Use
  Company Number: US-BRISTOL-MYERS SQUIBB COMPANY-2022-079324

PATIENT
  Age: 60 Year
  Sex: Female
  Weight: 79.38 kg

DRUGS (3)
  1. REVLIMID [Suspect]
     Active Substance: LENALIDOMIDE
     Indication: Plasma cell myeloma
     Route: 048
     Dates: start: 20220628
  2. NEUPOGEN [Concomitant]
     Active Substance: FILGRASTIM
  3. FARYDAK [Concomitant]
     Active Substance: PANOBINOSTAT

REACTIONS (5)
  - Fatigue [Unknown]
  - Nausea [Unknown]
  - Disorientation [Unknown]
  - Paralysis [Unknown]
  - Bone pain [Unknown]
